FAERS Safety Report 19102079 (Version 3)
Quarter: 2022Q3

REPORT INFORMATION
  Report Type: Spontaneous
  Country: FR (occurrence: FR)
  Receive Date: 20210407
  Receipt Date: 20220929
  Transmission Date: 20221026
  Serious: Yes (Life-Threatening, Hospitalization)
  Sender: FDA-Public Use
  Company Number: FR-NORDICGR-2021000827

PATIENT
  Age: 72 Year
  Sex: Female
  Weight: 73 kg

DRUGS (12)
  1. APROTININ [Suspect]
     Active Substance: APROTININ
     Indication: Bentall procedure
     Dosage: 3.25 MEGA-INTERNATIONAL UNIT TOTAL LOADING DOSE 1 MILLION IU PUMP PRIMING DOSE 1 MILLION IU MAINTENA
     Route: 042
     Dates: start: 20201217, end: 20201217
  2. PROPOFOL [Concomitant]
     Active Substance: PROPOFOL
     Indication: Product used for unknown indication
     Route: 065
  3. HEPARIN [Concomitant]
     Active Substance: HEPARIN SODIUM
     Indication: Product used for unknown indication
     Route: 065
  4. SUFENTANIL [Concomitant]
     Active Substance: SUFENTANIL
     Indication: Product used for unknown indication
     Dosage: UNK
     Route: 065
  5. KETAMIN S [Concomitant]
     Indication: Product used for unknown indication
     Dosage: UNK
     Route: 065
  6. ASPIRIN [Concomitant]
     Active Substance: ASPIRIN
     Indication: Antiplatelet therapy
  7. FIBRINOGEN [Concomitant]
     Active Substance: FIBRINOGEN HUMAN
     Indication: Transfusion
     Dosage: 4 GRAM INTRAOPERATIVELY AND UP TO 48 HOURS AFTER SURGERY
     Route: 042
     Dates: start: 20201217
  8. FRESH FROZEN PLASMA [Concomitant]
     Active Substance: HUMAN PLASMA
     Indication: Transfusion
     Dosage: 1899 MILLILITRE INTRAOPERATIVELY AND UP TO 48 HOURS AFTER SURGERY
     Route: 042
     Dates: start: 20201217
  9. PLATELETS [Concomitant]
     Active Substance: HUMAN PLATELET, ALLOGENIC
     Indication: Transfusion
     Dosage: 475 MILLILITRE INTRAOPERATIVELY AND UP TO 48 HOURS AFTER SURGERY
     Route: 042
     Dates: start: 20201217
  10. HUMAN RED BLOOD CELL [Concomitant]
     Active Substance: HUMAN RED BLOOD CELL
     Indication: Transfusion
     Dosage: 2644 MILLILITRE INTRAOPERATIVELY AND UP TO 48 HOURS AFTER SURGERY
     Route: 042
     Dates: start: 20201217
  11. HEPARIN [Concomitant]
     Active Substance: HEPARIN SODIUM
     Indication: Anticoagulant therapy
     Dosage: 42 KILO-INTERNATIONAL UNIT DURING SURGERY
     Route: 042
     Dates: start: 20201217, end: 20201217
  12. HEPARIN [Suspect]
     Active Substance: HEPARIN SODIUM
     Indication: Anticoagulant therapy

REACTIONS (3)
  - Ischaemic stroke [Not Recovered/Not Resolved]
  - Product use in unapproved indication [Unknown]
  - Off label use [None]

NARRATIVE: CASE EVENT DATE: 20201217
